FAERS Safety Report 10495921 (Version 1)
Quarter: 2014Q4

REPORT INFORMATION
  Report Type: Spontaneous
  Country: US (occurrence: US)
  Receive Date: 20141003
  Receipt Date: 20141003
  Transmission Date: 20150528
  Serious: No
  Sender: FDA-Public Use
  Company Number: US-PFIZER INC-2014268740

PATIENT
  Age: 62 Year
  Sex: Male
  Weight: 104 kg

DRUGS (36)
  1. PRILOSEC [Concomitant]
     Active Substance: OMEPRAZOLE MAGNESIUM
  2. DEPAKOTE [Concomitant]
     Active Substance: DIVALPROEX SODIUM
     Dosage: 125 MG, UNK
  3. VITAMIN E [Concomitant]
     Active Substance: .ALPHA.-TOCOPHEROL
     Dosage: 1000 IU, UNK
  4. NIACIN. [Concomitant]
     Active Substance: NIACIN
     Dosage: 500 MG
  5. CORTICOTROPIN [Concomitant]
     Active Substance: CORTICOTROPIN
     Dosage: 80 IU, UNK
  6. AMPYRA [Suspect]
     Active Substance: DALFAMPRIDINE
     Dosage: 10 MG, 2X/DAY
     Route: 048
     Dates: start: 2013
  7. AMANTADINE [Concomitant]
     Active Substance: AMANTADINE
     Dosage: 100 MG, UNK
  8. GILENYA [Concomitant]
     Active Substance: FINGOLIMOD HYDROCHLORIDE
  9. HYDROCODONE W/ACETAMINOPHEN [Concomitant]
     Active Substance: ACETAMINOPHEN\HYDROCODONE BITARTRATE
  10. TYLENOL PM [Concomitant]
     Active Substance: ACETAMINOPHEN\DIPHENHYDRAMINE
  11. DIVALPROEX SODIUM. [Concomitant]
     Active Substance: DIVALPROEX SODIUM
     Dosage: 500 MG, UNK
  12. GABAPENTIN. [Suspect]
     Active Substance: GABAPENTIN
     Dosage: 300 MG, 2X/DAY
     Route: 048
     Dates: start: 2014
  13. TIZANIDINE (TIZANIDINE) [Suspect]
     Active Substance: TIZANIDINE
     Dosage: UNK
  14. NUVIGIL [Concomitant]
     Active Substance: ARMODAFINIL
     Dosage: 50 MG, UNK
  15. CENTRUM SILVER [Concomitant]
     Active Substance: VITAMINS
     Dosage: UNK
  16. ATORVASTATIN [Concomitant]
     Active Substance: ATORVASTATIN
     Dosage: 80 MG, UNK
  17. GABAPENTIN. [Suspect]
     Active Substance: GABAPENTIN
     Dosage: 300 MG, UNK
     Route: 048
  18. OCUVITE [Concomitant]
     Active Substance: VITAMINS
  19. ASPIRIN. [Concomitant]
     Active Substance: ASPIRIN
     Dosage: 81 MG, UNK
  20. ASPIRIN. [Concomitant]
     Active Substance: ASPIRIN
     Dosage: 81 MG, UNK
  21. ADVIL PM [Concomitant]
     Active Substance: DIPHENHYDRAMINE CITRATE\IBUPROFEN
     Dosage: UNK
  22. FISH OIL [Concomitant]
     Active Substance: FISH OIL
  23. CARVEDILOL. [Concomitant]
     Active Substance: CARVEDILOL
     Dosage: 12.5 MG, UNK
  24. GABAPENTIN. [Suspect]
     Active Substance: GABAPENTIN
     Indication: NEUROPATHY PERIPHERAL
     Dosage: 600 MG, 3X/DAY
     Route: 048
     Dates: end: 2014
  25. AMPYRA [Suspect]
     Active Substance: DALFAMPRIDINE
     Indication: MULTIPLE SCLEROSIS
     Dosage: 10 MG, 1X/DAY
     Route: 048
     Dates: start: 201105
  26. FINASTERIDE. [Concomitant]
     Active Substance: FINASTERIDE
  27. VENLAFAXINE [Concomitant]
     Active Substance: VENLAFAXINE HYDROCHLORIDE
     Dosage: 25 MG, UNK
  28. TERAZOSIN [Concomitant]
     Active Substance: TERAZOSIN\TERAZOSIN HYDROCHLORIDE
  29. CHOLECALCIFEROL [Concomitant]
     Active Substance: CHOLECALCIFEROL
     Dosage: UNK
  30. AMPYRA [Suspect]
     Active Substance: DALFAMPRIDINE
     Indication: GAIT DISTURBANCE
     Dosage: 10 MG, 2X/DAY
     Route: 048
  31. VITAMIN B12 [Concomitant]
     Active Substance: CYANOCOBALAMIN
     Dosage: 1000 UG, UNK
  32. SIMVASTATIN. [Concomitant]
     Active Substance: SIMVASTATIN
  33. LIPITOR [Concomitant]
     Active Substance: ATORVASTATIN CALCIUM
     Dosage: 20 MG, UNK
  34. OMEPRAZOLE. [Concomitant]
     Active Substance: OMEPRAZOLE
     Dosage: 10 MG, UNK
  35. VITAMIN D [Concomitant]
     Active Substance: CHOLECALCIFEROL
     Dosage: 1000 IU, UNK
  36. REBIF [Concomitant]
     Active Substance: INTERFERON BETA-1A
     Dosage: UNK

REACTIONS (11)
  - Oedema peripheral [Not Recovered/Not Resolved]
  - Vitreous floaters [Not Recovered/Not Resolved]
  - Muscular weakness [Recovered/Resolved]
  - Amnesia [Unknown]
  - Circadian rhythm sleep disorder [Not Recovered/Not Resolved]
  - Somnolence [Unknown]
  - Insomnia [Not Recovered/Not Resolved]
  - Asthenia [Not Recovered/Not Resolved]
  - Joint swelling [Not Recovered/Not Resolved]
  - Dyskinesia [Not Recovered/Not Resolved]
  - Urinary tract infection [Unknown]

NARRATIVE: CASE EVENT DATE: 20130606
